FAERS Safety Report 24697154 (Version 2)
Quarter: 2025Q1

REPORT INFORMATION
  Report Type: Spontaneous
  Country: US (occurrence: US)
  Receive Date: 20241204
  Receipt Date: 20250228
  Transmission Date: 20250409
  Serious: Yes (Other)
  Sender: PFIZER
  Company Number: US-PFIZER INC-PV202300044800

PATIENT
  Age: 74 Year
  Sex: Female
  Weight: 52.1 kg

DRUGS (3)
  1. XALKORI [Suspect]
     Active Substance: CRIZOTINIB
     Indication: Lung cancer metastatic
     Dates: start: 20191021
  2. XALKORI [Suspect]
     Active Substance: CRIZOTINIB
     Indication: Meningioma
     Dosage: TAKE 1 CAPSULE (250 MG TOTAL) BY MOUTH IN MORNING + 1 CAPSULE BEFORE BEDTIME
     Route: 048
  3. XALKORI [Suspect]
     Active Substance: CRIZOTINIB
     Dosage: 250 MG, 2X/DAY (TAKE WITH OR WITHOUT FOOD. DO NOT CRUSH, CHEW, DISSOLVE, OR OPEN. SWALLOW IT WHOLE.)
     Route: 048

REACTIONS (3)
  - Arthralgia [Unknown]
  - Gait inability [Unknown]
  - Intentional product misuse [Unknown]
